FAERS Safety Report 6719608-3 (Version None)
Quarter: 2010Q2

REPORT INFORMATION
  Report Type: 
  Country: None (occurrence: None)
  Receive Date: 20100511
  Receipt Date: 20100506
  Transmission Date: 20101027
  Serious: Yes (Other)
  Sender: FDA-Public Use
  Company Number: FR-WYE-G06091510

PATIENT
  Sex: Male

DRUGS (1)
  1. TAZOCILLINE [Suspect]
     Dosage: UNKNOWN
     Route: 042
     Dates: start: 20100317, end: 20100326

REACTIONS (2)
  - COAGULATION FACTOR V LEVEL DECREASED [None]
  - PROTHROMBIN TIME PROLONGED [None]
